FAERS Safety Report 12489413 (Version 3)
Quarter: 2017Q2

REPORT INFORMATION
  Report Type: Report from Study
  Country: MY (occurrence: MY)
  Receive Date: 20160622
  Receipt Date: 20170405
  Transmission Date: 20170912
  Serious: Yes (Hospitalization)
  Sender: FDA-Public Use
  Company Number: MY-JNJFOC-20160615994

PATIENT
  Age: 79 Year
  Sex: Female

DRUGS (15)
  1. ASPIRIN [Concomitant]
     Indication: ANGINA UNSTABLE
     Route: 048
     Dates: start: 20160408
  2. PLAVIX [Concomitant]
     Indication: ANGINA UNSTABLE
     Route: 048
     Dates: start: 20160408
  3. CLOPIDOGREL [Concomitant]
     Indication: ANGINA UNSTABLE
     Route: 048
     Dates: start: 20160408
  4. ATORVASTATIN [Concomitant]
     Active Substance: ATORVASTATIN
     Indication: ANGINA UNSTABLE
     Route: 048
     Dates: start: 20160408
  5. VASTAREL [Concomitant]
     Active Substance: TRIMETAZIDINE DIHYDROCHLORIDE
     Indication: ANGINA UNSTABLE
     Route: 048
     Dates: start: 20160408
  6. MAXOLON [Concomitant]
     Active Substance: METOCLOPRAMIDE HYDROCHLORIDE
     Indication: DIARRHOEA
     Route: 042
     Dates: start: 20140906
  7. BISOPROLOL [Concomitant]
     Active Substance: BISOPROLOL
     Indication: ANGINA UNSTABLE
     Route: 048
     Dates: start: 20160408
  8. CANAGLIFLOZIN [Suspect]
     Active Substance: CANAGLIFLOZIN
     Route: 048
  9. MAXOLON [Concomitant]
     Active Substance: METOCLOPRAMIDE HYDROCHLORIDE
     Indication: ANGINA UNSTABLE
     Route: 042
     Dates: start: 20140906
  10. ARIXTRA [Concomitant]
     Indication: ANGINA UNSTABLE
     Route: 058
     Dates: start: 20160408
  11. ASPIRIN [Concomitant]
     Indication: ANGINA UNSTABLE
     Route: 048
     Dates: start: 20160408
  12. MORPHINE [Concomitant]
     Active Substance: MORPHINE
     Indication: ANGINA UNSTABLE
     Route: 042
     Dates: start: 20160408
  13. MAXOLON [Concomitant]
     Active Substance: METOCLOPRAMIDE HYDROCHLORIDE
     Indication: DIARRHOEA
     Route: 042
     Dates: start: 20160408
  14. MAXOLON [Concomitant]
     Active Substance: METOCLOPRAMIDE HYDROCHLORIDE
     Indication: ANGINA UNSTABLE
     Route: 042
     Dates: start: 20160408
  15. OMEPRAZOLE [Concomitant]
     Indication: DIARRHOEA
     Route: 042
     Dates: start: 20140906

REACTIONS (1)
  - Peripheral vascular disorder [Recovered/Resolved]

NARRATIVE: CASE EVENT DATE: 20160524
